FAERS Safety Report 7511839-8 (Version None)
Quarter: 2011Q2

REPORT INFORMATION
  Report Type: 
  Country: None (occurrence: None)
  Receive Date: 20110531
  Receipt Date: 20110523
  Transmission Date: 20111010
  Serious: Yes (Hospitalization, Other)
  Sender: FDA-Public Use
  Company Number: DE-PFIZER INC-2011111015

PATIENT
  Age: 72 Year
  Sex: Female
  Weight: 63 kg

DRUGS (9)
  1. PREDNISOLONE [Concomitant]
     Indication: TOXOPLASMOSIS
     Dosage: 100 MG, 1X/DAY
     Route: 048
     Dates: start: 20110402, end: 20110404
  2. IRBESARTAN [Concomitant]
     Indication: HYPERTENSION
     Dosage: 300 MG, 1X/DAY
     Route: 048
  3. HYDROCHLOROTHIAZIDE [Concomitant]
     Indication: HYPERTENSION
     Dosage: 12.5 MG, 1X/DAY
     Route: 048
  4. PANTOPRAZOLE [Concomitant]
     Indication: PROPHYLAXIS AGAINST GASTROINTESTINAL ULCER
     Dosage: 40 MG, 1X/DAY
     Route: 048
  5. SULFASALAZINE [Suspect]
     Indication: TOXOPLASMOSIS
     Dosage: 1000 MG, 3X/DAY
     Dates: start: 20110402, end: 20110408
  6. CLINDAMYCIN HCL [Suspect]
     Indication: TOXOPLASMOSIS
     Dosage: 300 MG, 4X/DAY
     Route: 048
     Dates: start: 20110402
  7. PREDNISOLONE [Concomitant]
     Dosage: 40 MG, 1X/DAY
     Dates: start: 20110413
  8. PREDNISOLONE [Concomitant]
     Dosage: 50 MG, 1X/DAY
     Dates: start: 20110405, end: 20110412
  9. MOXONIDINE [Concomitant]
     Indication: HYPERTENSION
     Dosage: 0.3 MG, 1X/DAY
     Route: 048

REACTIONS (3)
  - DIARRHOEA [None]
  - HYPONATRAEMIA [None]
  - NAUSEA [None]
